FAERS Safety Report 13340109 (Version 1)
Quarter: 2017Q1

REPORT INFORMATION
  Report Type: Spontaneous
  Country: US (occurrence: US)
  Receive Date: 20170316
  Receipt Date: 20170316
  Transmission Date: 20170428
  Serious: No
  Sender: FDA-Public Use
  Company Number: ALCN2017US001981

PATIENT
  Age: 72 Year
  Sex: Male

DRUGS (1)
  1. GENTEAL MILD [Suspect]
     Active Substance: HYPROMELLOSE 2910 (4000 MPA.S)
     Indication: PRODUCT USED FOR UNKNOWN INDICATION
     Dosage: UNK UNK, QD
     Route: 047
     Dates: start: 20170314, end: 20170314

REACTIONS (2)
  - Expired product administered [Unknown]
  - Eye irritation [Recovered/Resolved]

NARRATIVE: CASE EVENT DATE: 20170314
